FAERS Safety Report 4532883-9 (Version None)
Quarter: 2004Q4

REPORT INFORMATION
  Report Type: 
  Country: None (occurrence: None)
  Receive Date: 20041210
  Receipt Date: 20040917
  Transmission Date: 20050328
  Serious: No
  Sender: FDA-Public Use
  Company Number: 2004-00539

PATIENT
  Age: 62 Year
  Sex: Female
  Weight: 61.7 kg

DRUGS (1)
  1. VELCADE [Suspect]
     Indication: MULTIPLE MYELOMA
     Dosage: 1.60 MG, INTRAVENOUS
     Route: 042

REACTIONS (5)
  - FATIGUE [None]
  - HERPES ZOSTER [None]
  - LIGHT CHAIN ANALYSIS INCREASED [None]
  - PLATELET COUNT DECREASED [None]
  - SKIN LESION [None]
